FAERS Safety Report 8830823 (Version 2)
Quarter: 2012Q4

REPORT INFORMATION
  Report Type: 
  Country: US (occurrence: US)
  Receive Date: 20121009
  Receipt Date: 20121017
  Transmission Date: 20130627
  Serious: Yes (Other)
  Sender: FDA-Public Use
  Company Number: US-AMGEN-USASP2012063583

PATIENT
  Age: 40 Year
  Sex: Male

DRUGS (5)
  1. ENBREL [Suspect]
     Indication: RHEUMATOID ARTHRITIS
     Dosage: UNK
     Dates: start: 2009
  2. MTX                                /00113801/ [Concomitant]
     Indication: RHEUMATOID ARTHRITIS
     Dosage: UNK
  3. LANTUS [Concomitant]
     Indication: DIABETES MELLITUS
     Dosage: UNK
  4. HUMALOG [Concomitant]
     Indication: DIABETES MELLITUS
     Dosage: UNK
  5. CELEBREX [Concomitant]
     Dosage: UNK

REACTIONS (4)
  - Squamous cell carcinoma of the tongue [Unknown]
  - Tonsil cancer [Unknown]
  - Synovial disorder [Unknown]
  - Joint range of motion decreased [Unknown]
